FAERS Safety Report 11867614 (Version 2)
Quarter: 2016Q1

REPORT INFORMATION
  Report Type: Spontaneous
  Country: JP (occurrence: JP)
  Receive Date: 20151224
  Receipt Date: 20160107
  Transmission Date: 20160526
  Serious: Yes (Hospitalization)
  Sender: FDA-Public Use
  Company Number: JP-SA-2015SA215756

PATIENT
  Age: 85 Year
  Sex: Male
  Weight: 76.6 kg

DRUGS (13)
  1. SILODOSIN [Concomitant]
     Active Substance: SILODOSIN
  2. AZELNIDIPINE [Concomitant]
     Active Substance: AZELNIDIPINE
  3. ISOSORBIDE DINITRATE. [Concomitant]
     Active Substance: ISOSORBIDE DINITRATE
  4. EZETIMIBE. [Concomitant]
     Active Substance: EZETIMIBE
  5. DOXAZOSIN MESILATE [Concomitant]
     Active Substance: DOXAZOSIN MESYLATE
  6. OLMESARTAN MEDOXOMIL. [Concomitant]
     Active Substance: OLMESARTAN MEDOXOMIL
  7. FUROSEMIDE. [Suspect]
     Active Substance: FUROSEMIDE
     Route: 048
  8. TRICHLORMETHIAZIDE [Suspect]
     Active Substance: TRICHLORMETHIAZIDE
     Route: 048
  9. POLYCARBOPHIL CALCIUM [Concomitant]
     Active Substance: CALCIUM POLYCARBOPHIL
  10. SPIRONOLACTONE. [Concomitant]
     Active Substance: SPIRONOLACTONE
  11. ASPIRIN. [Concomitant]
     Active Substance: ASPIRIN
  12. OLOPATADINE HYDROCHLORIDE. [Concomitant]
     Active Substance: OLOPATADINE HYDROCHLORIDE
  13. RABEPRAZOLE SODIUM. [Concomitant]
     Active Substance: RABEPRAZOLE SODIUM

REACTIONS (17)
  - C-reactive protein increased [Recovered/Resolved]
  - Tenderness [Unknown]
  - Bone erosion [Unknown]
  - Erythema [Unknown]
  - Arthralgia [Unknown]
  - Musculoskeletal pain [Unknown]
  - Soft tissue inflammation [Recovering/Resolving]
  - Gouty tophus [Recovering/Resolving]
  - Pain in extremity [Unknown]
  - Swelling [Recovering/Resolving]
  - Hyperuricaemia [Recovering/Resolving]
  - Nodule [Unknown]
  - Peripheral swelling [Unknown]
  - Pyrexia [Recovering/Resolving]
  - Arthralgia [Recovering/Resolving]
  - Radioisotope scan [Unknown]
  - Pain in extremity [Recovering/Resolving]
